FAERS Safety Report 7877810-1 (Version None)
Quarter: 2011Q4

REPORT INFORMATION
  Report Type: 
  Country: None (occurrence: None)
  Receive Date: 20111031
  Receipt Date: 20111031
  Transmission Date: 20120403
  Serious: No
  Sender: FDA-Public Use
  Company Number: None

PATIENT
  Age: 74 Year
  Sex: Male
  Weight: 70 kg

DRUGS (1)
  1. SENSIPAR [Suspect]
     Indication: HYPERTHYROIDISM
     Dosage: 1 TAB
     Dates: start: 20110610, end: 20111210

REACTIONS (4)
  - HYPOAESTHESIA [None]
  - PARAESTHESIA [None]
  - MUSCLE SPASMS [None]
  - PRURITUS GENERALISED [None]
